FAERS Safety Report 26174134 (Version 1)
Quarter: 2025Q4

REPORT INFORMATION
  Report Type: Spontaneous
  Country: EU (occurrence: EU)
  Receive Date: 20251218
  Receipt Date: 20251218
  Transmission Date: 20260118
  Serious: Yes (Hospitalization, Congenital Anomaly, Other)
  Sender: TORRENT PHARMA INC.
  Company Number: None

PATIENT
  Age: 1 Day
  Sex: Female
  Weight: 1 kg

DRUGS (12)
  1. AZATHIOPRINE [Suspect]
     Active Substance: AZATHIOPRINE
     Indication: Product used for unknown indication
     Route: 064
  2. SILDENAFIL [Suspect]
     Active Substance: SILDENAFIL
     Indication: Product used for unknown indication
     Route: 064
  3. APIXABAN [Suspect]
     Active Substance: APIXABAN
     Indication: Product used for unknown indication
     Route: 064
  4. HYDROXYCHLOROQUINE [Suspect]
     Active Substance: HYDROXYCHLOROQUINE
     Indication: Product used for unknown indication
     Dosage: MOTHER DOSE: 200 MILLIGRAM
     Route: 064
  5. OPSUMIT [Suspect]
     Active Substance: MACITENTAN
     Indication: Product used for unknown indication
     Route: 064
  6. PREDNISOLONE [Suspect]
     Active Substance: PREDNISOLONE
     Indication: Product used for unknown indication
     Route: 064
  7. TINZAPARIN [Suspect]
     Active Substance: TINZAPARIN
     Indication: Product used for unknown indication
     Route: 064
  8. TREPROSTINIL [Suspect]
     Active Substance: TREPROSTINIL
     Indication: Product used for unknown indication
     Route: 064
  9. VENTAVIS [Suspect]
     Active Substance: ILOPROST
     Indication: Product used for unknown indication
     Route: 064
  10. BETAMETHASONE [Concomitant]
     Active Substance: BETAMETHASONE
     Indication: Product used for unknown indication
     Route: 064
  11. Femibion [Concomitant]
     Indication: Product used for unknown indication
     Route: 064
  12. ATOSIBAN [Concomitant]
     Active Substance: ATOSIBAN
     Indication: Product used for unknown indication
     Route: 064

REACTIONS (13)
  - Bradycardia [Unknown]
  - Osteochondrodysplasia [Unknown]
  - Cyanosis [Unknown]
  - Hypotonia [Unknown]
  - Multiple epiphyseal dysplasia [Unknown]
  - Neonatal respiratory distress syndrome [Unknown]
  - Posture abnormal [Unknown]
  - Premature baby [Unknown]
  - Congenital musculoskeletal disorder [Unknown]
  - Foetal growth restriction [Unknown]
  - Foetal exposure timing unspecified [Unknown]
  - Skeletal dysplasia [Unknown]
  - Brachydactyly [Unknown]

NARRATIVE: CASE EVENT DATE: 20151010
